FAERS Safety Report 5224232-8 (Version None)
Quarter: 2007Q1

REPORT INFORMATION
  Report Type: 
  Country: None (occurrence: None)
  Receive Date: 20070130
  Receipt Date: 20070118
  Transmission Date: 20070707
  Serious: Yes (Hospitalization)
  Sender: FDA-Public Use
  Company Number: HQWYE058222JAN07

PATIENT
  Sex: Male
  Weight: 70.37 kg

DRUGS (27)
  1. RAPAMUNE [Suspect]
     Indication: PROPHYLAXIS AGAINST TRANSPLANT REJECTION
     Dosage: UNKNOWN
     Route: 048
     Dates: start: 20040824, end: 20060306
  2. RAPAMUNE [Suspect]
     Route: 048
     Dates: start: 20060307, end: 20060307
  3. RAPAMUNE [Suspect]
     Route: 048
     Dates: start: 20060308, end: 20060802
  4. RAPAMUNE [Suspect]
     Dosage: 6 MG DAILY ALTERNATING WITH 5 MG DAILY ON ODD DAYS
     Route: 048
     Dates: start: 20060803, end: 20070109
  5. RAPAMUNE [Suspect]
     Dosage: 6 MG DAILY ALTERNATING WITH 5 MG DAILY ON ODD DAYS
     Route: 048
     Dates: start: 20070113
  6. PREDNISONE [Concomitant]
     Indication: IMMUNOSUPPRESSANT DRUG THERAPY
     Route: 065
     Dates: start: 20041111
  7. LIPITOR [Concomitant]
     Indication: HYPERLIPIDAEMIA
     Route: 065
     Dates: start: 20050719
  8. TENORMIN [Concomitant]
     Indication: HYPERTENSION
     Route: 065
     Dates: start: 20041215
  9. LISINOPRIL [Concomitant]
     Indication: HYPERTENSION
     Route: 065
     Dates: start: 20050907
  10. CYMBALTA [Concomitant]
     Dosage: UNKNOWN
     Route: 065
     Dates: start: 20051227
  11. BACTRIM DS [Concomitant]
     Dosage: UNKNOWN
     Route: 065
     Dates: start: 20000307
  12. ESOMEPRAZOLE MAGNESIUM [Concomitant]
     Dosage: UNKNOWN
     Route: 065
     Dates: start: 20041112
  13. CALCIUM CARBONATE [Concomitant]
     Dosage: UNKNOWN
     Dates: start: 20000614
  14. ACETYLSALICYLIC ACID [Concomitant]
     Dosage: UNKNOWN
     Dates: start: 20041111
  15. PLAVIX [Concomitant]
     Dosage: UNKNOWN
     Dates: start: 20041111
  16. FLOMAX [Concomitant]
     Dosage: UNKNOWN
     Dates: start: 20010831
  17. MULTIVIT [Concomitant]
     Dosage: UNKNOWN
     Dates: start: 20000307
  18. BUSPAR [Concomitant]
     Dosage: UNKNOWN
     Dates: start: 20020910
  19. CLONAZEPAM [Concomitant]
     Dosage: UNKNOWN
     Dates: start: 20040907
  20. PERCOCET [Concomitant]
     Dosage: UNKNOWN
     Dates: start: 20041111
  21. CLARINEX [Concomitant]
     Dosage: UNKNOWN
     Dates: start: 20041004
  22. AMBIEN [Concomitant]
     Dosage: UNKNOWN
     Dates: start: 20030303
  23. NOVOLOG [Concomitant]
     Dosage: UNKNOWN
     Dates: start: 20051227
  24. LANTUS [Concomitant]
     Dosage: UNKNOWN
     Dates: start: 20051227
  25. ROSIGLITAZONE [Concomitant]
     Dosage: UNKNOWN
     Dates: start: 20060206
  26. GLIMEPIRIDE [Concomitant]
     Dosage: UNKNOWN
     Dates: start: 20060206
  27. CELLCEPT [Suspect]
     Indication: IMMUNOSUPPRESSANT DRUG THERAPY
     Route: 065
     Dates: start: 20041121

REACTIONS (2)
  - ASTHENIA [None]
  - RENAL IMPAIRMENT [None]
